FAERS Safety Report 6035882-3 (Version None)
Quarter: 2009Q1

REPORT INFORMATION
  Report Type: 
  Country: None (occurrence: None)
  Receive Date: 20090113
  Receipt Date: 20090109
  Transmission Date: 20090719
  Serious: Yes (Hospitalization)
  Sender: FDA-Public Use
  Company Number: A0718142A

PATIENT
  Age: 60 Year
  Sex: Female
  Weight: 87.3 kg

DRUGS (4)
  1. AVANDIA [Suspect]
     Dosage: 4MG PER DAY
     Dates: start: 20050101, end: 20070101
  2. ZOCOR [Concomitant]
  3. METEPROLOL [Concomitant]
  4. ACIPHEX [Concomitant]

REACTIONS (2)
  - CARDIAC FAILURE CONGESTIVE [None]
  - HEART INJURY [None]
